FAERS Safety Report 9122402 (Version 1)
Quarter: 2013Q1

REPORT INFORMATION
  Report Type: Spontaneous
  Country: JP (occurrence: JP)
  Receive Date: 20130114
  Receipt Date: 20130114
  Transmission Date: 20140127
  Serious: Yes (Death)
  Sender: FDA-Public Use
  Company Number: PHHY2013JP002517

PATIENT
  Age: 61 Year
  Sex: Male

DRUGS (4)
  1. CICLOSPORIN [Suspect]
     Indication: INTERSTITIAL LUNG DISEASE
  2. METHYLPREDNISOLONE [Suspect]
     Indication: INTERSTITIAL LUNG DISEASE
  3. PREDNISOLONE [Suspect]
     Indication: INTERSTITIAL LUNG DISEASE
     Route: 048
  4. HEPARIN [Concomitant]
     Indication: ANTICOAGULANT THERAPY

REACTIONS (1)
  - Interstitial lung disease [Fatal]
